FAERS Safety Report 9586323 (Version 1)
Quarter: 2013Q4

REPORT INFORMATION
  Report Type: Spontaneous
  Country: FR (occurrence: FR)
  Receive Date: 20131003
  Receipt Date: 20131003
  Transmission Date: 20140711
  Serious: Yes (Death, Hospitalization)
  Sender: FDA-Public Use
  Company Number: PHHY2013FR110055

PATIENT
  Age: 57 Year
  Sex: Male

DRUGS (2)
  1. AFINITOR [Suspect]
     Indication: HEPATOCELLULAR CARCINOMA
     Route: 048
     Dates: start: 201306
  2. AFINITOR [Suspect]
     Indication: OFF LABEL USE

REACTIONS (3)
  - Death [Fatal]
  - Lung disorder [Unknown]
  - Dyspnoea [Unknown]
